FAERS Safety Report 13936907 (Version 1)
Quarter: 2017Q3

REPORT INFORMATION
  Report Type: Spontaneous
  Country: CA (occurrence: CA)
  Receive Date: 20170905
  Receipt Date: 20170905
  Transmission Date: 20171127
  Serious: Yes (Other)
  Sender: FDA-Public Use
  Company Number: CA-SEBELA IRELAND LIMITED-2017SEB00395

PATIENT
  Age: 34 Year
  Sex: Male

DRUGS (10)
  1. TOCILIZUMAB. [Suspect]
     Active Substance: TOCILIZUMAB
  2. HUMIRA [Suspect]
     Active Substance: ADALIMUMAB
     Route: 058
  3. ARAVA [Suspect]
     Active Substance: LEFLUNOMIDE
  4. NEORAL [Suspect]
     Active Substance: CYCLOSPORINE
     Indication: PSORIASIS
     Dosage: 200 MG, 2X/DAY
     Route: 048
  5. REMICADE [Suspect]
     Active Substance: INFLIXIMAB
     Route: 042
  6. STELARA [Suspect]
     Active Substance: USTEKINUMAB
     Dosage: UNK MG, UNK
     Route: 058
  7. METHOTREXATE. [Suspect]
     Active Substance: METHOTREXATE
  8. IMURAN [Suspect]
     Active Substance: AZATHIOPRINE
  9. BETAMETHASONE. [Suspect]
     Active Substance: BETAMETHASONE
  10. ENBREL [Suspect]
     Active Substance: ETANERCEPT

REACTIONS (10)
  - Stomatitis [Unknown]
  - Drug eruption [Unknown]
  - Pneumonia [Unknown]
  - Epistaxis [Unknown]
  - Hypersensitivity [Unknown]
  - Urticaria [Unknown]
  - Pain in extremity [Unknown]
  - Drug ineffective [Unknown]
  - Hepatic function abnormal [Unknown]
  - Muscle spasms [Unknown]
